FAERS Safety Report 8210611-3 (Version None)
Quarter: 2012Q1

REPORT INFORMATION
  Report Type: 
  Country: None (occurrence: None)
  Receive Date: 20120314
  Receipt Date: 20120307
  Transmission Date: 20120608
  Serious: Yes (Hospitalization)
  Sender: FDA-Public Use
  Company Number: JP-MERCK-1203USA01264

PATIENT
  Age: 70 Year
  Sex: Male

DRUGS (14)
  1. LENDORMIN [Concomitant]
     Dosage: DOSAGE IS UNCERTAIN DURING A DAY.
     Route: 048
  2. DASEN [Concomitant]
     Dosage: DOSAGE IS UNCERTAIN DURING A DAY.
     Route: 048
  3. MUCOSTA [Concomitant]
     Dosage: DOSAGE IS UNCERTAIN DURING A DAY.
     Route: 065
  4. ARTANE [Concomitant]
     Dosage: DOSAGE IS UNCERTAIN DURING A DAY.
     Route: 048
  5. ZETIA [Suspect]
     Indication: HEPATIC STEATOSIS
     Dosage: DOSE NOT CHANGED
     Route: 048
     Dates: start: 20100210
  6. MARTOS [Concomitant]
     Route: 041
  7. ALPRAZOLAM [Concomitant]
     Dosage: DOSAGE IS UNCERTAIN DURING A DAY.
     Route: 048
  8. MUCOSOLVAN [Concomitant]
     Dosage: DOSAGE IS UNCERTAIN DURING A DAY.
     Route: 048
  9. SYMMETREL [Concomitant]
     Dosage: DOSAGE IS UNCERTAIN DURING A DAY.
     Route: 048
  10. LOXONIN [Concomitant]
     Dosage: DOSAGE IS UNCERTAIN DURING A DAY.
     Route: 048
  11. PROTECADIN [Concomitant]
     Dosage: DOSAGE IS UNCERTAIN DURING A DAY.
     Route: 048
  12. ZETIA [Suspect]
     Indication: HYPERCHOLESTEROLAEMIA
     Dosage: DOSE NOT CHANGED
     Route: 048
     Dates: start: 20100210
  13. DOGMATYL [Concomitant]
     Dosage: DOSAGE IS UNCERTAIN DURING A DAY.
     Route: 065
  14. MUCODYNE [Concomitant]
     Dosage: DOSAGE IS UNCERTAIN DURING A DAY.
     Route: 048

REACTIONS (1)
  - BILE DUCT CANCER [None]
